FAERS Safety Report 11836412 (Version 1)
Quarter: 2015Q4

REPORT INFORMATION
  Report Type: Spontaneous
  Country: US (occurrence: US)
  Receive Date: 20151215
  Receipt Date: 20151215
  Transmission Date: 20160305
  Serious: No
  Sender: FDA-Public Use
  Company Number: US-BAYER-2015-486973

PATIENT
  Age: 75 Year
  Sex: Male
  Weight: 88.44 kg

DRUGS (3)
  1. DIPHENHYDRAMINE. [Concomitant]
     Active Substance: DIPHENHYDRAMINE
     Dosage: 1 DF, ONCE
     Route: 048
     Dates: start: 20151209, end: 20151209
  2. CLARITIN [Suspect]
     Active Substance: LORATADINE
     Dosage: UNK
  3. CLARITIN REDITABS [Suspect]
     Active Substance: LORATADINE
     Dosage: UNK
     Route: 048

REACTIONS (3)
  - Product use issue [None]
  - Somnolence [None]
  - Product use issue [None]

NARRATIVE: CASE EVENT DATE: 20151209
